FAERS Safety Report 6258932-8 (Version None)
Quarter: 2009Q3

REPORT INFORMATION
  Report Type: 
  Country: None (occurrence: None)
  Receive Date: 20090707
  Receipt Date: 20090702
  Transmission Date: 20100115
  Serious: Yes (Other)
  Sender: FDA-Public Use
  Company Number: IT-ABBOTT-09P-083-0583339-00

PATIENT

DRUGS (2)
  1. ADALIMUMAB [Suspect]
     Indication: CROHN'S DISEASE
     Dosage: 160/80 INDUCTION REGIMEN
  2. ADALIMUMAB [Suspect]

REACTIONS (1)
  - ILEAL PERFORATION [None]
